FAERS Safety Report 10250293 (Version 1)
Quarter: 2014Q2

REPORT INFORMATION
  Report Type: Spontaneous
  Country: US (occurrence: US)
  Receive Date: 20140620
  Receipt Date: 20140620
  Transmission Date: 20141212
  Serious: No
  Sender: FDA-Public Use
  Company Number: US-PFIZER INC-2014166437

PATIENT
  Age: 51 Year
  Sex: 0

DRUGS (1)
  1. XELJANZ [Suspect]
     Indication: RHEUMATOID ARTHRITIS
     Dosage: 5 MG, 2X/DAY
     Route: 048
     Dates: start: 20140612

REACTIONS (3)
  - Pharyngeal hypoaesthesia [Unknown]
  - Pharyngeal oedema [Unknown]
  - Oropharyngeal pain [Unknown]
